FAERS Safety Report 6970191-7 (Version None)
Quarter: 2010Q3

REPORT INFORMATION
  Report Type: 
  Country: None (occurrence: None)
  Receive Date: 20100908
  Receipt Date: 20100831
  Transmission Date: 20110219
  Serious: Yes (Hospitalization, Other)
  Sender: FDA-Public Use
  Company Number: JP-ROXANE LABORATORIES, INC.-2010-RO-01169RO

PATIENT
  Age: 79 Year
  Sex: Female

DRUGS (6)
  1. DEXAMETHASONE [Suspect]
     Indication: MULTIPLE MYELOMA
     Dosage: 8 MG
  2. DEXAMETHASONE [Suspect]
     Dosage: 8 MG
  3. DEXAMETHASONE [Suspect]
     Dates: start: 20050101
  4. BORTEZOMIB [Suspect]
     Indication: MULTIPLE MYELOMA
  5. BORTEZOMIB [Suspect]
  6. THALIDOMIDE [Suspect]
     Indication: MULTIPLE MYELOMA
     Dates: start: 20050101

REACTIONS (3)
  - ACUTE MYOCARDIAL INFARCTION [None]
  - DRUG INEFFECTIVE [None]
  - MYOCARDIAL ISCHAEMIA [None]
